FAERS Safety Report 9280457 (Version 1)
Quarter: 2013Q1

REPORT INFORMATION
  Report Type: Spontaneous
  Country: US (occurrence: None)
  Receive Date: 20130314
  Receipt Date: 20130314
  Transmission Date: 20140127
  Serious: Yes (Other)
  Sender: FDA-Public Use
  Company Number: 2013030014

PATIENT
  Sex: Male

DRUGS (1)
  1. FELBATOL (FELBAMATE) [Suspect]
     Dosage: 1200 MG (600 MG,2 IN 1 D)

REACTIONS (3)
  - Dysphagia [None]
  - Convulsion [None]
  - Condition aggravated [None]
